FAERS Safety Report 23815660 (Version 4)
Quarter: 2024Q4

REPORT INFORMATION
  Report Type: Report from Study
  Country: KR (occurrence: KR)
  Receive Date: 20240503
  Receipt Date: 20241016
  Transmission Date: 20250114
  Serious: Yes (Hospitalization)
  Sender: MYLAN
  Company Number: KR-MYLANLABS-2024M1037719

PATIENT
  Age: 67 Year
  Sex: Male
  Weight: 66.2 kg

DRUGS (9)
  1. PRETOMANID [Suspect]
     Active Substance: PRETOMANID
     Indication: Tuberculosis
     Dosage: 200 MILLIGRAM, QD
     Route: 048
     Dates: start: 20231123
  2. BEDAQUILINE [Suspect]
     Active Substance: BEDAQUILINE
     Indication: Product used for unknown indication
     Dosage: 400 MILLIGRAM, QD
     Route: 065
     Dates: start: 20231123, end: 20231207
  3. BEDAQUILINE [Suspect]
     Active Substance: BEDAQUILINE
     Dosage: 200 MILLIGRAM, TID
     Route: 065
     Dates: start: 20231208, end: 20240509
  4. LINEZOLID [Suspect]
     Active Substance: LINEZOLID
     Indication: Product used for unknown indication
     Dosage: UNK
     Route: 065
     Dates: start: 20231114, end: 20240215
  5. LINEZOLID [Suspect]
     Active Substance: LINEZOLID
     Dosage: 300 MILLIGRAM, QD
     Route: 065
     Dates: start: 20240216, end: 20240301
  6. GLIMEPIRIDE\METFORMIN [Concomitant]
     Active Substance: GLIMEPIRIDE\METFORMIN
     Indication: Colorectal cancer
     Dosage: 500 MILLIGRAM, QD
     Route: 048
     Dates: start: 20130101
  7. ATORVASTATIN CALCIUM\GLIMEPIRIDE\METFORMIN HYDROCHLORIDE [Concomitant]
     Active Substance: ATORVASTATIN CALCIUM\GLIMEPIRIDE\METFORMIN HYDROCHLORIDE
     Indication: Colorectal cancer
     Dosage: 50 MILLIGRAM, QD
     Route: 048
     Dates: start: 20130101
  8. TADALAFIL\TAMSULOSIN HYDROCHLORIDE [Concomitant]
     Active Substance: TADALAFIL\TAMSULOSIN HYDROCHLORIDE
     Indication: Colorectal cancer
     Dosage: 0.4 MILLIGRAM, QD
     Route: 048
     Dates: start: 20160101
  9. ENTECAVIR [Concomitant]
     Active Substance: ENTECAVIR
     Indication: Colorectal cancer
     Dosage: 0.5 MILLIGRAM, QD
     Route: 048
     Dates: start: 20160101

REACTIONS (8)
  - Metastasis [Recovering/Resolving]
  - Hypoaesthesia [Unknown]
  - Productive cough [Recovering/Resolving]
  - Nausea [Recovered/Resolved]
  - Decreased appetite [Recovered/Resolved]
  - Platelet count decreased [Recovered/Resolved]
  - Dizziness [Recovered/Resolved]
  - Myalgia [Recovered/Resolved]

NARRATIVE: CASE EVENT DATE: 20231123
